FAERS Safety Report 7590405-2 (Version None)
Quarter: 2011Q3

REPORT INFORMATION
  Report Type: 
  Country: None (occurrence: None)
  Receive Date: 20110705
  Receipt Date: 20110628
  Transmission Date: 20111222
  Serious: Yes (Hospitalization)
  Sender: FDA-Public Use
  Company Number: US-GILEAD-2011-0040621

PATIENT
  Sex: Male

DRUGS (4)
  1. REMODULIN [Concomitant]
  2. LETAIRIS [Suspect]
     Indication: HIV INFECTION
  3. FLOLAN [Concomitant]
  4. LETAIRIS [Suspect]
     Indication: PULMONARY HYPERTENSION
     Route: 048
     Dates: start: 20100225

REACTIONS (1)
  - COLITIS [None]
